FAERS Safety Report 5949001-2 (Version None)
Quarter: 2008Q4

REPORT INFORMATION
  Report Type: 
  Country: None (occurrence: None)
  Receive Date: 20081111
  Receipt Date: 20081030
  Transmission Date: 20090506
  Serious: Yes (Other)
  Sender: FDA-Public Use
  Company Number: US-ELI_LILLY_AND_COMPANY-US200810007707

PATIENT
  Sex: Female

DRUGS (1)
  1. BYETTA [Suspect]
     Dosage: 5 UG, UNK
     Dates: start: 20070417, end: 20081024

REACTIONS (7)
  - CHOLECYSTECTOMY [None]
  - FACET JOINT SYNDROME [None]
  - HIATUS HERNIA [None]
  - INGUINAL HERNIA [None]
  - PANCREATITIS [None]
  - SPINAL OSTEOARTHRITIS [None]
  - VASCULAR CALCIFICATION [None]
